FAERS Safety Report 5496951-X (Version None)
Quarter: 2007Q4

REPORT INFORMATION
  Report Type: 
  Country: None (occurrence: None)
  Receive Date: 20071025
  Receipt Date: 20071022
  Transmission Date: 20080405
  Serious: Yes (Other)
  Sender: FDA-Public Use
  Company Number: B0481750A

PATIENT
  Age: 76 Year
  Sex: Female

DRUGS (4)
  1. SERETIDE [Suspect]
     Indication: ASTHMA
     Dosage: 500MCG TWICE PER DAY
     Route: 055
     Dates: start: 20070630
  2. SINGULAIR [Concomitant]
     Indication: ASTHMA
     Dosage: 10MG PER DAY
     Route: 048
     Dates: start: 20070708
  3. QVAR 40 [Concomitant]
     Indication: ASTHMA
     Dosage: 200MCG PER DAY
     Route: 055
     Dates: end: 20070629
  4. ONON [Concomitant]
     Indication: ASTHMA
     Dosage: 225MG PER DAY
     Route: 048
     Dates: end: 20070707

REACTIONS (2)
  - ANOSMIA [None]
  - PAROSMIA [None]
